FAERS Safety Report 20977397 (Version 2)
Quarter: 2022Q2

REPORT INFORMATION
  Report Type: Spontaneous
  Country: US (occurrence: US)
  Receive Date: 20220617
  Receipt Date: 20220628
  Transmission Date: 20220721
  Serious: No
  Sender: FDA-Public Use
  Company Number: US-JNJFOC-20220600437

PATIENT
  Age: 44 Year
  Sex: Female
  Weight: 170 kg

DRUGS (1)
  1. TREMFYA [Suspect]
     Active Substance: GUSELKUMAB
     Indication: Psoriasis
     Dosage: INJECT CONTENTS OF PIN INTO THE SKIN AT WEEK 0, WEEK 4, THEN 8 WEEKS THERAFTER
     Route: 065
     Dates: start: 20220329

REACTIONS (4)
  - Pruritus [Unknown]
  - Injection site pain [Unknown]
  - Product dose omission issue [Unknown]
  - Syringe issue [Unknown]

NARRATIVE: CASE EVENT DATE: 20220529
